FAERS Safety Report 5247515-4 (Version None)
Quarter: 2007Q1

REPORT INFORMATION
  Report Type: 
  Country: None (occurrence: None)
  Receive Date: 20070227
  Receipt Date: 20070215
  Transmission Date: 20070707
  Serious: Yes (Other)
  Sender: FDA-Public Use
  Company Number: US-ELI_LILLY_AND_COMPANY-US200612000587

PATIENT
  Age: 70 Year
  Sex: Female

DRUGS (1)
  1. FORTEO [Suspect]
     Indication: OSTEOPOROSIS
     Dosage: UNK, UNK
     Dates: start: 20061010

REACTIONS (6)
  - ABDOMINAL PAIN UPPER [None]
  - ERYTHEMA [None]
  - HEADACHE [None]
  - HIATUS HERNIA [None]
  - PROCEDURAL PAIN [None]
  - SPINAL FRACTURE [None]
